FAERS Safety Report 18667037 (Version 5)
Quarter: 2021Q2

REPORT INFORMATION
  Report Type: Report from Study
  Country: US (occurrence: US)
  Receive Date: 20201228
  Receipt Date: 20210520
  Transmission Date: 20210717
  Serious: No
  Sender: FDA-Public Use
  Company Number: NVSC2020US334972

PATIENT
  Sex: Male

DRUGS (2)
  1. KESIMPTA [Suspect]
     Active Substance: OFATUMUMAB
     Dosage: UNK (DOSE REDUCED)
     Route: 065
  2. KESIMPTA [Suspect]
     Active Substance: OFATUMUMAB
     Indication: PRODUCT USED FOR UNKNOWN INDICATION
     Dosage: 20 MG
     Route: 058
     Dates: start: 20201208

REACTIONS (9)
  - Nasopharyngitis [Recovering/Resolving]
  - Upper respiratory tract infection [Unknown]
  - Stress [Not Recovered/Not Resolved]
  - Decreased immune responsiveness [Unknown]
  - Feeling guilty [Not Recovered/Not Resolved]
  - Bronchitis [Recovering/Resolving]
  - Illness [Unknown]
  - Oral candidiasis [Unknown]
  - Urinary tract infection [Unknown]
